FAERS Safety Report 5622890-7 (Version None)
Quarter: 2008Q1

REPORT INFORMATION
  Report Type: 
  Country: None (occurrence: None)
  Receive Date: 20080212
  Receipt Date: 20080206
  Transmission Date: 20080703
  Serious: Yes (Hospitalization)
  Sender: FDA-Public Use
  Company Number: US-ASTRAZENECA-2007UW25831

PATIENT
  Age: 25738 Day
  Sex: Male
  Weight: 74.5 kg

DRUGS (7)
  1. CRESTOR [Suspect]
     Indication: HYPERLIPIDAEMIA
     Route: 048
     Dates: start: 20070905, end: 20071009
  2. TRICOR [Concomitant]
     Indication: DYSLIPIDAEMIA
     Dates: start: 20070905, end: 20071009
  3. PLAVIX [Concomitant]
     Route: 048
  4. TOPROL-XL [Concomitant]
     Indication: HYPERTENSION
     Route: 048
  5. DARVOCET [Concomitant]
  6. TRANQUILIZERS [Concomitant]
  7. HISTORY OF ZOCOR AND TRICOR USE [Concomitant]

REACTIONS (5)
  - ALCOHOL DETOXIFICATION [None]
  - ANTICHOLINERGIC SYNDROME [None]
  - RENAL FAILURE [None]
  - RHABDOMYOLYSIS [None]
  - STAPHYLOCOCCAL BACTERAEMIA [None]
